FAERS Safety Report 10079059 (Version 3)
Quarter: 2014Q2

REPORT INFORMATION
  Report Type: Spontaneous
  Country: RU (occurrence: RU)
  Receive Date: 20140415
  Receipt Date: 20140509
  Transmission Date: 20141212
  Serious: Yes (Death, Life-Threatening, Hospitalization)
  Sender: FDA-Public Use
  Company Number: 2014SP000994

PATIENT
  Age: 56 Year
  Sex: Male

DRUGS (10)
  1. CISPLATIN [Suspect]
     Indication: METASTATIC GASTRIC CANCER
     Route: 041
     Dates: start: 20130208, end: 20130208
  2. FLUOROURACIL [Suspect]
     Indication: METASTATIC GASTRIC CANCER
     Route: 041
     Dates: start: 20130208, end: 20130213
  3. NADROPARIN [Suspect]
     Indication: THROMBOSIS
     Dates: start: 20130131, end: 20130310
  4. RABEPRAZOLE [Concomitant]
     Indication: HAEMORRHAGE PROPHYLAXIS
     Dates: start: 20130122, end: 20130310
  5. NITROXOLINE [Concomitant]
     Indication: PROPHYLAXIS
     Dates: start: 20130207, end: 20130210
  6. DEXAMETHASONE [Concomitant]
     Indication: PREMEDICATION
     Dates: start: 20130208, end: 20130211
  7. ONDANSETRON [Concomitant]
     Indication: PREMEDICATION
     Dates: start: 20130208, end: 20130208
  8. APREPITANT [Concomitant]
     Indication: PREMEDICATION
     Dates: start: 20130208, end: 20130210
  9. BENZYDAMINE [Concomitant]
     Indication: STOMATITIS
     Dates: start: 20130215, end: 20130221
  10. FILGRASTIM [Concomitant]
     Indication: NEUTROPENIA
     Dates: start: 20130313, end: 20130315

REACTIONS (9)
  - Disease progression [Fatal]
  - Metastatic gastric cancer [Fatal]
  - Anaemia [Not Recovered/Not Resolved]
  - Thrombocytopenia [Recovered/Resolved]
  - Gastric haemorrhage [Recovered/Resolved]
  - Melaena [Recovered/Resolved]
  - Haematemesis [Recovered/Resolved]
  - Abdominal discomfort [Recovered/Resolved]
  - Asthenia [Recovered/Resolved]
